FAERS Safety Report 18067221 (Version 1)
Quarter: 2020Q3

REPORT INFORMATION
  Report Type: Spontaneous
  Country: CA (occurrence: CA)
  Receive Date: 20200724
  Receipt Date: 20200724
  Transmission Date: 20201103
  Serious: Yes (Other)
  Sender: FDA-Public Use
  Company Number: CA-PFIZER INC-2020280826

PATIENT
  Age: 66 Year
  Sex: Male

DRUGS (13)
  1. HYDROXYCHLOROQUINE [Concomitant]
     Active Substance: HYDROXYCHLOROQUINE
     Indication: RHEUMATOID ARTHRITIS
     Dosage: 400 MG, DAILY M?F
     Route: 048
     Dates: start: 20200710
  2. AMLODIPINE [Concomitant]
     Active Substance: AMLODIPINE BESYLATE
     Dosage: 5 MG QHS
     Route: 048
  3. LOZIDE [INDAPAMIDE] [Concomitant]
     Dosage: 1.25 MG, 1X/DAY
     Route: 048
  4. JENTADUETO [Concomitant]
     Active Substance: LINAGLIPTIN\METFORMIN HYDROCHLORIDE
     Dosage: 2.5/1000MG 1 TABLET, 2X/DAY
     Route: 048
  5. LINAGLIPTIN [Concomitant]
     Active Substance: LINAGLIPTIN
     Dosage: UNK
     Route: 048
  6. METOPROLOL. [Concomitant]
     Active Substance: METOPROLOL
     Dosage: 50 MG, 1X/DAY
     Route: 048
  7. PANTOLOC [PANTOPRAZOLE] [Concomitant]
     Active Substance: PANTOPRAZOLE SODIUM
     Dosage: 40 MG, DAILY
     Route: 048
  8. VITAMIN B COMPLEX [Concomitant]
     Active Substance: CYANOCOBALAMIN\DEXPANTHENOL\NIACINAMIDE\PYRIDOXINE HYDROCHLORIDE\RIBOFLAVIN 5^-PHOSPHATE SODIUM\THIAMINE HYDROCHLORIDE\VITAMIN B COMPLEX
     Dosage: UNK
     Route: 048
  9. DIAMICRON MR [Concomitant]
     Active Substance: GLICLAZIDE
     Dosage: 30 MG, 2X/DAY
     Route: 048
  10. LIPITOR [Suspect]
     Active Substance: ATORVASTATIN CALCIUM
     Dosage: 20 MG, DAILY (EVERY BEDTIME)
     Route: 048
  11. PLAQUENIL [Concomitant]
     Active Substance: HYDROXYCHLOROQUINE SULFATE
     Dosage: 400 MG ORALLY Q AM MONDAY TO FRIDAY ONLY
     Route: 048
  12. NORVASC [Suspect]
     Active Substance: AMLODIPINE BESYLATE
     Dosage: 5 MG, DAILY(EVERY BEDTIME)
     Route: 048
  13. MELOXICAM. [Concomitant]
     Active Substance: MELOXICAM
     Dosage: 15 MG, DAILY
     Route: 048

REACTIONS (13)
  - Pleural fibrosis [Unknown]
  - Hypercholesterolaemia [Unknown]
  - Rheumatoid arthritis [Unknown]
  - Productive cough [Unknown]
  - Disease recurrence [Unknown]
  - Hypertension [Unknown]
  - Bronchiectasis [Unknown]
  - Pain in extremity [Unknown]
  - Hilar lymphadenopathy [Unknown]
  - Arthralgia [Not Recovered/Not Resolved]
  - Lymphadenopathy mediastinal [Unknown]
  - Joint swelling [Unknown]
  - Nasopharyngitis [Unknown]
